FAERS Safety Report 5956916-8 (Version None)
Quarter: 2008Q4

REPORT INFORMATION
  Report Type: 
  Country: None (occurrence: None)
  Receive Date: 20081103
  Receipt Date: 20070924
  Transmission Date: 20090506
  Serious: Yes (Hospitalization)
  Sender: FDA-Public Use
  Company Number: US200703005923

PATIENT
  Age: 43 Year
  Sex: Female

DRUGS (5)
  1. PROZAC [Suspect]
     Indication: DEPRESSION
     Dosage: 60 MG, DAILY (1/D), ORAL
     Route: 048
     Dates: start: 20061201, end: 20070301
  2. ACAMPROSATE CALCIUM (ACAMPROSATE CALCIUM) [Concomitant]
  3. BUSPIRONE HCL [Concomitant]
  4. PANTOPRAZOLE SODIUM [Concomitant]
  5. DOXEPIN (DOXPIN) [Concomitant]

REACTIONS (3)
  - GASTROINTESTINAL HAEMORRHAGE [None]
  - HAEMORRHOIDS [None]
  - THROMBOCYTOPENIA [None]
